FAERS Safety Report 13827866 (Version 1)
Quarter: 2017Q3

REPORT INFORMATION
  Report Type: Spontaneous
  Country: FR (occurrence: FR)
  Receive Date: 20170803
  Receipt Date: 20170803
  Transmission Date: 20171127
  Serious: Yes (Other)
  Sender: FDA-Public Use
  Company Number: FR-009507513-1708FRA001225

PATIENT
  Age: 76 Year
  Sex: Male

DRUGS (5)
  1. JANUMET [Suspect]
     Active Substance: METFORMIN HYDROCHLORIDE\SITAGLIPTIN PHOSPHATE
     Dosage: LONG TERM
     Route: 048
  2. BCG MEDAC [Suspect]
     Active Substance: BACILLUS CALMETTE-GUERIN ANTIGEN, UNSPECIFIED SUBSTRAIN
     Indication: TRANSITIONAL CELL CARCINOMA
     Dosage: 1, QW
     Route: 043
     Dates: start: 20170720, end: 20170720
  3. OFLOCET (OFLOXACIN) [Suspect]
     Active Substance: OFLOXACIN
     Indication: PROPHYLAXIS
     Dosage: ONE TABLET 200 MG ON 20-JUL-2017 AT NOON AND ON 21-JUL-2017 IN THE MORNING
     Route: 048
     Dates: start: 20170720, end: 20170721
  4. AMAREL [Suspect]
     Active Substance: GLIMEPIRIDE
     Dosage: LONG TERM
     Route: 048
  5. LANTUS [Suspect]
     Active Substance: INSULIN GLARGINE
     Dosage: LONG TERM
     Route: 058

REACTIONS (5)
  - Vomiting [Recovered/Resolved]
  - Malaise [Recovered/Resolved]
  - Fall [Recovered/Resolved]
  - Vertigo [Recovered/Resolved]
  - Tremor [Recovered/Resolved]

NARRATIVE: CASE EVENT DATE: 20170721
